FAERS Safety Report 5821132-7 (Version None)
Quarter: 2008Q3

REPORT INFORMATION
  Report Type: 
  Country: None (occurrence: None)
  Receive Date: 20080724
  Receipt Date: 20080715
  Transmission Date: 20090109
  Serious: Yes (Hospitalization)
  Sender: FDA-Public Use
  Company Number: FR-WYE-H05171808

PATIENT
  Sex: Female

DRUGS (10)
  1. CORDARONE [Suspect]
     Dosage: 200 MG TABLET, FREQUENCY NOT SPECIFIED
     Route: 048
  2. TRAMADOL HCL [Suspect]
     Route: 048
  3. IMOVANE [Concomitant]
     Dosage: DOSE AND FREQUENCY NOT SPECIFIED
     Route: 048
  4. ALDACTAZINE [Concomitant]
     Dosage: DOSE AND FREQUENCY NOT SPECIFIED
     Route: 048
  5. BISOPROLOL FUMARATE [Concomitant]
     Dosage: DOSE AND FREQUENCY NOT SPECIFIED
     Route: 048
  6. DAFLON [Concomitant]
     Dosage: DOSE AND FREQUENCY NOT SPECIFIED
     Route: 048
  7. SINTROM [Suspect]
     Dosage: 2 MG THE FIRST DAY
     Route: 048
     Dates: end: 20061101
  8. SINTROM [Suspect]
     Dosage: 1 MG THE TWO FOLLOWING DAYS
     Route: 048
     Dates: start: 20061101, end: 20061101
  9. SINTROM [Suspect]
     Route: 048
     Dates: start: 20061101, end: 20061127
  10. ATORVASTATIN CALCIUM [Suspect]
     Dosage: DOSE AND FREQUENCY NOT SPECIFIED
     Route: 048

REACTIONS (1)
  - POST PROCEDURAL HAEMATOMA [None]
